FAERS Safety Report 24206825 (Version 3)
Quarter: 2024Q4

REPORT INFORMATION
  Report Type: Report from Study
  Country: JP (occurrence: JP)
  Receive Date: 20240813
  Receipt Date: 20241227
  Transmission Date: 20250115
  Serious: Yes (Hospitalization)
  Sender: RADIUS PHARM
  Company Number: JP-RADIUS HEALTH, INC.-2023JP004733

PATIENT
  Age: 76 Year
  Sex: Female

DRUGS (1)
  1. ABALOPARATIDE [Suspect]
     Active Substance: ABALOPARATIDE
     Indication: Product used for unknown indication
     Dosage: 80 MICROGRAM, QD
     Route: 058
     Dates: start: 20230802

REACTIONS (9)
  - Injection site pain [Unknown]
  - Injection site haemorrhage [Recovered/Resolved]
  - Musculoskeletal stiffness [Unknown]
  - Physical deconditioning [Unknown]
  - Injection site haemorrhage [Unknown]
  - Needle track marks [Unknown]
  - Injection site swelling [Unknown]
  - Injection site haemorrhage [Recovered/Resolved]
  - Physical deconditioning [Recovering/Resolving]

NARRATIVE: CASE EVENT DATE: 20230101
